FAERS Safety Report 7190655-3 (Version None)
Quarter: 2010Q4

REPORT INFORMATION
  Report Type: 
  Country: None (occurrence: None)
  Receive Date: 20101221
  Receipt Date: 20101221
  Transmission Date: 20110411
  Serious: No
  Sender: FDA-Public Use
  Company Number: None

PATIENT

DRUGS (2)
  1. HEPARIN [Suspect]
     Indication: ANTICOAGULANT THERAPY
     Dosage: QUANTITY SUFFICIENT BYPASS MACHINE IV   ESTIMATED 20 DAYS
     Route: 042
     Dates: start: 20101201, end: 20101220
  2. HEPARIN [Suspect]
     Indication: THROMBOSIS IN DEVICE
     Dosage: QUANTITY SUFFICIENT BYPASS MACHINE IV   ESTIMATED 20 DAYS
     Route: 042
     Dates: start: 20101201, end: 20101220

REACTIONS (3)
  - PRODUCT MEASURED POTENCY ISSUE [None]
  - PRODUCT QUALITY ISSUE [None]
  - THROMBOSIS IN DEVICE [None]
